FAERS Safety Report 25700444 (Version 1)
Quarter: 2025Q3

REPORT INFORMATION
  Report Type: Spontaneous
  Country: US (occurrence: None)
  Receive Date: 20250818
  Receipt Date: 20250818
  Transmission Date: 20251020
  Serious: Yes (Other)
  Sender: FDA-CTU
  Company Number: None

PATIENT
  Age: 85 Year
  Sex: Female

DRUGS (2)
  1. OPDUALAG [Suspect]
     Active Substance: NIVOLUMAB\RELATLIMAB-RMBW
  2. DUPIXENT [Suspect]
     Active Substance: DUPILUMAB

REACTIONS (7)
  - Weight increased [None]
  - Peripheral swelling [None]
  - Peripheral swelling [None]
  - Renal disorder [None]
  - Cardiomyopathy [None]
  - Rash pruritic [None]
  - Scar [None]
